FAERS Safety Report 24727298 (Version 1)
Quarter: 2024Q4

REPORT INFORMATION
  Report Type: Spontaneous
  Country: US (occurrence: None)
  Receive Date: 20241211
  Receipt Date: 20241211
  Transmission Date: 20250114
  Serious: Yes (Other)
  Sender: Public
  Company Number: None

PATIENT
  Age: 81 Year
  Sex: Male
  Weight: 80.14 kg

DRUGS (3)
  1. LEQEMBI [Suspect]
     Active Substance: LECANEMAB-IRMB
     Indication: Dementia Alzheimer^s type
     Dosage: FREQUENCY : EVERY OTHER WEEK;?
     Route: 042
     Dates: start: 20241203
  2. TYLENOL [Suspect]
     Active Substance: ACETAMINOPHEN
  3. BENADRYL [Suspect]
     Active Substance: DIPHENHYDRAMINE HYDROCHLORIDE

REACTIONS (6)
  - Chills [None]
  - Gait disturbance [None]
  - Confusional state [None]
  - Dizziness [None]
  - Nonspecific reaction [None]
  - Asthenia [None]

NARRATIVE: CASE EVENT DATE: 20241203
